FAERS Safety Report 20549771 (Version 1)
Quarter: 2022Q1

REPORT INFORMATION
  Report Type: Spontaneous
  Country: US (occurrence: US)
  Receive Date: 20220304
  Receipt Date: 20220304
  Transmission Date: 20220424
  Serious: No
  Sender: FDA-Public Use
  Company Number: US-PURDUE PHARMA-USA-2021-0287329

PATIENT
  Age: 57 Year
  Sex: Female
  Weight: 84 kg

DRUGS (4)
  1. BUTRANS [Suspect]
     Active Substance: BUPRENORPHINE
     Indication: Arthritis
     Dosage: 15 MCG/HR, WEEKLY
     Route: 062
     Dates: start: 202108
  2. BUTRANS [Suspect]
     Active Substance: BUPRENORPHINE
     Indication: Pain management
  3. HYDROCODONE [Concomitant]
     Active Substance: HYDROCODONE
     Indication: Breakthrough pain
     Dosage: 7.5 MG, Q8H
     Route: 048
     Dates: start: 202108
  4. TRAMADOL [Concomitant]
     Active Substance: TRAMADOL
     Indication: Breakthrough pain
     Route: 048

REACTIONS (8)
  - Drug withdrawal syndrome [Not Recovered/Not Resolved]
  - Pain [Not Recovered/Not Resolved]
  - Drug ineffective [Not Recovered/Not Resolved]
  - Headache [Not Recovered/Not Resolved]
  - Nausea [Not Recovered/Not Resolved]
  - Vomiting [Not Recovered/Not Resolved]
  - Diarrhoea [Not Recovered/Not Resolved]
  - Product adhesion issue [Unknown]

NARRATIVE: CASE EVENT DATE: 20210801
